FAERS Safety Report 4377656-5 (Version None)
Quarter: 2004Q2

REPORT INFORMATION
  Report Type: 
  Country: None (occurrence: None)
  Receive Date: 20040601
  Receipt Date: 20040210
  Transmission Date: 20050107
  Serious: No
  Sender: FDA-Public Use
  Company Number: WAES 0401USA01327

PATIENT
  Age: 68 Year
  Sex: Female
  Weight: 58.9676 kg

DRUGS (6)
  1. ZETIA [Suspect]
     Indication: BLOOD CHOLESTEROL INCREASED
     Dosage: 10 MG/DAILY/PO
     Route: 048
     Dates: start: 20030801, end: 20040101
  2. ALTACE [Concomitant]
  3. EVISTA [Concomitant]
  4. FOLTX [Concomitant]
  5. ASPIRIN [Concomitant]
  6. INDAPAMIDE [Concomitant]

REACTIONS (3)
  - ARTHRALGIA [None]
  - FLANK PAIN [None]
  - PAIN IN EXTREMITY [None]
